FAERS Safety Report 18708733 (Version 1)
Quarter: 2021Q1

REPORT INFORMATION
  Report Type: Spontaneous
  Country: US (occurrence: US)
  Receive Date: 20210106
  Receipt Date: 20210106
  Transmission Date: 20210419
  Serious: No
  Sender: FDA-Public Use
  Company Number: US-009507513-2101USA000473

PATIENT
  Age: 58 Year
  Sex: Male

DRUGS (2)
  1. KEYTRUDA [Suspect]
     Active Substance: PEMBROLIZUMAB
     Indication: CUTANEOUS T-CELL LYMPHOMA REFRACTORY
     Dosage: 200 MILLIGRAM, EVERY 3 WEEKS
     Dates: start: 201907, end: 202007
  2. THERAPEUTIC RADIOPHARMACEUTICAL (UNSPECIFIED) [Concomitant]
     Active Substance: UNSPECIFIED INGREDIENT

REACTIONS (1)
  - Product use in unapproved indication [Unknown]

NARRATIVE: CASE EVENT DATE: 201907
